FAERS Safety Report 23722950 (Version 2)
Quarter: 2024Q2

REPORT INFORMATION
  Report Type: Spontaneous
  Country: US (occurrence: US)
  Receive Date: 20240409
  Receipt Date: 20240530
  Transmission Date: 20240716
  Serious: Yes (Other)
  Sender: FDA-Public Use
  Company Number: US-PFIZER INC-PV202400045677

PATIENT
  Age: 10 Year
  Sex: Male
  Weight: 27.5 kg

DRUGS (3)
  1. SOMATROPIN [Suspect]
     Active Substance: SOMATROPIN
     Indication: Growth hormone deficiency
     Dosage: 0.2 MG 6 DAYS/WEEK 0.14 MG/KG/WK
     Dates: start: 201412
  2. SOMATROPIN [Suspect]
     Active Substance: SOMATROPIN
     Dosage: 0.3 MG, DAILY
  3. SOMATROPIN [Suspect]
     Active Substance: SOMATROPIN
     Dosage: 0.4 MG 7 DAY/WEEK
     Dates: start: 20150903, end: 201512

REACTIONS (4)
  - Cardiovascular disorder [Unknown]
  - Hypertrophic cardiomyopathy [Unknown]
  - Subvalvular aortic stenosis [Unknown]
  - Drug ineffective [Unknown]

NARRATIVE: CASE EVENT DATE: 20150301
